FAERS Safety Report 17303204 (Version 2)
Quarter: 2021Q1

REPORT INFORMATION
  Report Type: Spontaneous
  Country: US (occurrence: US)
  Receive Date: 20200122
  Receipt Date: 20210114
  Transmission Date: 20210419
  Serious: Yes (Other)
  Sender: FDA-Public Use
  Company Number: US-SA-2020SA014948

PATIENT
  Sex: Female
  Weight: 58.97 kg

DRUGS (1)
  1. LOVENOX [Suspect]
     Active Substance: ENOXAPARIN SODIUM
     Indication: THROMBOSIS
     Dosage: UNK

REACTIONS (3)
  - Thrombosis [Unknown]
  - Therapeutic product effect decreased [Unknown]
  - Pain [Not Recovered/Not Resolved]
